FAERS Safety Report 6345225-3 (Version None)
Quarter: 2009Q3

REPORT INFORMATION
  Report Type: 
  Country: None (occurrence: None)
  Receive Date: 20090909
  Receipt Date: 20090831
  Transmission Date: 20100115
  Serious: Yes (Other)
  Sender: FDA-Public Use
  Company Number: US-JNJFOC-20090403410

PATIENT
  Sex: Female
  Weight: 61.69 kg

DRUGS (4)
  1. REMICADE [Suspect]
     Indication: RHEUMATOID ARTHRITIS
     Route: 042
  2. PREDNISONE TAB [Concomitant]
     Indication: RHEUMATOID ARTHRITIS
     Route: 065
  3. COUMADIN [Concomitant]
     Route: 065
  4. COUMADIN [Concomitant]
     Route: 065

REACTIONS (3)
  - FOREIGN BODY REACTION [None]
  - HAEMATOMA [None]
  - VASCULITIS [None]
